FAERS Safety Report 7104965-9 (Version None)
Quarter: 2010Q4

REPORT INFORMATION
  Report Type: 
  Country: None (occurrence: None)
  Receive Date: 20101116
  Receipt Date: 20101103
  Transmission Date: 20110411
  Serious: Yes (Other)
  Sender: FDA-Public Use
  Company Number: PHHY2010CA74534

PATIENT
  Sex: Female

DRUGS (9)
  1. ACLASTA [Suspect]
     Indication: OSTEOPOROSIS
     Dosage: UNK
     Route: 042
     Dates: start: 20100917
  2. MICARDIS [Concomitant]
     Dosage: 1/2
  3. ACEBUTOLOL [Concomitant]
     Dosage: 100 MG, QD
  4. HYDROCHLOROTHIAZIDE [Concomitant]
     Dosage: 12.5 MG, QD
  5. NITRO-DUR [Concomitant]
     Dosage: 0.4 MG, QD
  6. IMOVANE [Concomitant]
     Dosage: 7.5 MG, UNK
  7. PREDNISONE [Concomitant]
     Dosage: 5 MG, QD
  8. PREDNISONE [Concomitant]
     Dosage: 10 MG, QD
  9. ASPIRIN [Concomitant]

REACTIONS (1)
  - SYSTEMIC LUPUS ERYTHEMATOSUS [None]
